FAERS Safety Report 14494600 (Version 1)
Quarter: 2018Q1

REPORT INFORMATION
  Report Type: Spontaneous
  Country: DE (occurrence: DE)
  Receive Date: 20180206
  Receipt Date: 20180206
  Transmission Date: 20180509
  Serious: Yes (Hospitalization)
  Sender: FDA-Public Use
  Company Number: DE-TEVA-2018-DE-852590

PATIENT
  Age: 40 Year
  Sex: Female
  Weight: 60 kg

DRUGS (2)
  1. COPAXONE [Suspect]
     Active Substance: GLATIRAMER ACETATE
     Indication: MULTIPLE SCLEROSIS
     Dosage: UNKNOWN FORM STRENGTH
     Route: 058
     Dates: start: 2013
  2. VITAMIN D [Concomitant]
     Active Substance: CHOLECALCIFEROL
     Route: 048

REACTIONS (3)
  - Injection site hypoaesthesia [Unknown]
  - Cardiovascular disorder [Unknown]
  - Dermatitis [Unknown]

NARRATIVE: CASE EVENT DATE: 20171205
